FAERS Safety Report 5747594-1 (Version None)
Quarter: 2008Q2

REPORT INFORMATION
  Report Type: 
  Country: None (occurrence: None)
  Receive Date: 20080523
  Receipt Date: 20080523
  Transmission Date: 20081010
  Serious: Yes (Death)
  Sender: FDA-Public Use
  Company Number: None

PATIENT
  Sex: Male
  Weight: 72.5755 kg

DRUGS (1)
  1. HEPARIN [Suspect]
     Indication: MYOCARDIAL INFARCTION
     Dates: start: 20080214, end: 20080227

REACTIONS (3)
  - BLOOD PRESSURE DECREASED [None]
  - NO THERAPEUTIC RESPONSE [None]
  - THROMBOSIS [None]
